FAERS Safety Report 5910724-2 (Version None)
Quarter: 2008Q4

REPORT INFORMATION
  Report Type: 
  Country: None (occurrence: None)
  Receive Date: 20081007
  Receipt Date: 20080402
  Transmission Date: 20090506
  Serious: No
  Sender: FDA-Public Use
  Company Number: US-ASTRAZENECA-2008UW06615

PATIENT
  Age: 65 Year
  Sex: Female
  Weight: 81.6 kg

DRUGS (7)
  1. ARIMIDEX [Suspect]
     Indication: BREAST CANCER
     Route: 048
     Dates: start: 20050101
  2. DIOVAN [Concomitant]
  3. PREVACAL [Concomitant]
  4. METFORMIN HCL [Concomitant]
  5. METOPROLOL TARTRATE [Concomitant]
  6. HUMALOG [Concomitant]
  7. ASPIRIN [Concomitant]

REACTIONS (5)
  - COUGH [None]
  - ILL-DEFINED DISORDER [None]
  - MYALGIA [None]
  - PAIN IN EXTREMITY [None]
  - THROAT IRRITATION [None]
